FAERS Safety Report 9747662 (Version 2)
Quarter: 2013Q4

REPORT INFORMATION
  Report Type: Spontaneous
  Country: JP (occurrence: None)
  Receive Date: 20131206
  Receipt Date: 20131211
  Transmission Date: 20140711
  Serious: Yes (Other)
  Sender: FDA-Public Use
  Company Number: 2013JP007838

PATIENT
  Age: 30 Year
  Sex: Female

DRUGS (2)
  1. REGNITE [Suspect]
     Indication: RESTLESS LEGS SYNDROME
     Route: 048
     Dates: start: 20131106, end: 20131106
  2. ROZEREM (RAMELTEON) [Concomitant]

REACTIONS (2)
  - Gait disturbance [None]
  - Dizziness [None]
